FAERS Safety Report 5336145-1 (Version None)
Quarter: 2007Q1

REPORT INFORMATION
  Report Type: 
  Country: None (occurrence: None)
  Receive Date: 20070302
  Receipt Date: 20061219
  Transmission Date: 20070707
  Serious: No
  Sender: FDA-Public Use
  Company Number: PHEH2006US15407

PATIENT
  Sex: Male

DRUGS (1)
  1. ENABLEX [Suspect]
     Dosage: ONCE/SINGLE

REACTIONS (2)
  - ABDOMINAL DISTENSION [None]
  - FLATULENCE [None]
